FAERS Safety Report 19176189 (Version 2)
Quarter: 2021Q3

REPORT INFORMATION
  Report Type: Spontaneous
  Country: US (occurrence: US)
  Receive Date: 20210423
  Receipt Date: 20210722
  Transmission Date: 20211014
  Serious: No
  Sender: FDA-Public Use
  Company Number: 2020SGN03590

PATIENT
  Age: 67 Year
  Sex: Female

DRUGS (2)
  1. TUKYSA [Suspect]
     Active Substance: TUCATINIB
     Indication: BREAST CANCER FEMALE
  2. TUKYSA [Suspect]
     Active Substance: TUCATINIB
     Indication: METASTASES TO LUNG
     Dosage: UNK

REACTIONS (10)
  - Hypoaesthesia [Unknown]
  - Off label use [Unknown]
  - Unevaluable event [Unknown]
  - Malaise [Unknown]
  - Dysphagia [Unknown]
  - Product dose omission issue [Unknown]
  - Diarrhoea [Unknown]
  - Constipation [Unknown]
  - Brain oedema [Unknown]
  - Dehydration [Unknown]

NARRATIVE: CASE EVENT DATE: 202101
